FAERS Safety Report 22300254 (Version 1)
Quarter: 2023Q2

REPORT INFORMATION
  Report Type: Spontaneous
  Country: US (occurrence: US)
  Receive Date: 20230509
  Receipt Date: 20230509
  Transmission Date: 20230721
  Serious: Yes (Other)
  Sender: FDA-Public Use
  Company Number: US-ALXN-A202306131

PATIENT
  Age: 35 Year
  Sex: Female

DRUGS (4)
  1. SOLIRIS [Suspect]
     Active Substance: ECULIZUMAB
     Indication: Thrombotic microangiopathy
     Dosage: UNK, UNK, QW
     Route: 065
  2. SOLIRIS [Suspect]
     Active Substance: ECULIZUMAB
     Indication: Off label use
  3. BELATACEPT [Concomitant]
     Active Substance: BELATACEPT
     Indication: Thrombotic microangiopathy
     Dosage: UNK
     Route: 065
  4. EVEROLIMUS [Concomitant]
     Active Substance: EVEROLIMUS
     Indication: Thrombotic microangiopathy
     Dosage: UNK
     Route: 065

REACTIONS (2)
  - Graft ischaemia [Unknown]
  - Off label use [Unknown]
